FAERS Safety Report 6290712-X (Version None)
Quarter: 2009Q3

REPORT INFORMATION
  Report Type: 
  Country: None (occurrence: None)
  Receive Date: 20090730
  Receipt Date: 20090721
  Transmission Date: 20100115
  Serious: Yes (Hospitalization, Other)
  Sender: FDA-Public Use
  Company Number: US-AMGEN-US356835

PATIENT
  Sex: Female
  Weight: 45.9 kg

DRUGS (25)
  1. NEUPOGEN [Suspect]
     Indication: NEUTROPENIA
     Dates: start: 20090115
  2. PEGASYS [Suspect]
     Route: 058
     Dates: start: 20071112
  3. RIBAVIRIN [Suspect]
     Route: 048
     Dates: start: 20071112
  4. CLIMARA [Concomitant]
     Dates: start: 20040820, end: 20061211
  5. ACIPHEX [Concomitant]
     Dates: start: 20040820, end: 20050214
  6. REGLAN [Concomitant]
     Dates: start: 20040820
  7. WELLBUTRIN [Concomitant]
     Dates: start: 20050214, end: 20090115
  8. XANAX [Concomitant]
     Dates: start: 20050214
  9. CLONAZEPAM [Concomitant]
     Dates: start: 20061211
  10. OXYCODONE HCL [Concomitant]
     Dates: start: 20050214
  11. NEXIUM [Concomitant]
     Dates: start: 20050214
  12. PRILOSEC [Concomitant]
     Dates: start: 20071219
  13. PHENERGAN [Concomitant]
     Dates: start: 20050214
  14. COLCHICINE [Concomitant]
     Dates: start: 20061211, end: 20090115
  15. COMBIVENT [Concomitant]
     Dates: start: 20070621
  16. DUONEB [Concomitant]
     Dates: start: 20070621
  17. SPIRONOLACTONE [Concomitant]
     Dates: start: 20071112, end: 20090115
  18. FUROSEMIDE [Concomitant]
     Dates: start: 20071112, end: 20090115
  19. AMBIEN [Concomitant]
     Dates: start: 20071205
  20. KLOR-CON [Concomitant]
     Dates: start: 20080513
  21. MORPHINE [Concomitant]
     Dates: start: 20090115
  22. POTASSIUM CHLORIDE [Concomitant]
     Dates: start: 20090115
  23. VITAMIN D [Concomitant]
     Dates: start: 20090115
  24. NEURONTIN [Concomitant]
     Dates: start: 20090416
  25. SOMA [Concomitant]
     Dates: start: 20090521

REACTIONS (8)
  - ASTHENIA [None]
  - HAEMATOCRIT DECREASED [None]
  - HAEMOGLOBIN DECREASED [None]
  - LEUKOPENIA [None]
  - NEUTROPENIA [None]
  - PNEUMONIA [None]
  - PYREXIA [None]
  - THROMBOCYTOPENIA [None]
